FAERS Safety Report 7915781-X (Version None)
Quarter: 2011Q4

REPORT INFORMATION
  Report Type: 
  Country: None (occurrence: None)
  Receive Date: 20111115
  Receipt Date: 20111102
  Transmission Date: 20120403
  Serious: Yes (Hospitalization)
  Sender: FDA-Public Use
  Company Number: IT-CELGENEUS-083-50794-11101739

PATIENT
  Sex: Male

DRUGS (6)
  1. LEVOFLOXACIN [Concomitant]
     Route: 048
     Dates: start: 20110307, end: 20110912
  2. TAMSULOSIN HYDROCHLORIDE [Concomitant]
     Route: 048
     Dates: start: 20110307, end: 20110919
  3. ACYCLOVIR [Concomitant]
     Route: 048
  4. METFORAL [Concomitant]
     Route: 048
  5. VIDAZA [Suspect]
     Indication: MYELODYSPLASTIC SYNDROME
     Dosage: 1400 MILLIGRAM
     Route: 058
     Dates: start: 20110307, end: 20110912
  6. OMEPRAZOLE [Concomitant]
     Route: 048

REACTIONS (2)
  - SUPRAVENTRICULAR TACHYCARDIA [None]
  - CARDIAC FAILURE [None]
